FAERS Safety Report 16625581 (Version 1)
Quarter: 2019Q3

REPORT INFORMATION
  Report Type: Spontaneous
  Country: US (occurrence: US)
  Receive Date: 20190724
  Receipt Date: 20190724
  Transmission Date: 20191004
  Serious: Yes (Other)
  Sender: FDA-Public Use
  Company Number: US-ORPHAN EUROPE-2071239

PATIENT
  Age: 52 Year
  Sex: Female

DRUGS (1)
  1. CYSTADANE [Suspect]
     Active Substance: BETAINE
     Indication: PRODUCT USED FOR UNKNOWN INDICATION
     Dates: start: 20140728

REACTIONS (3)
  - Decreased appetite [Unknown]
  - Osteomyelitis [Unknown]
  - Fatigue [Unknown]

NARRATIVE: CASE EVENT DATE: 20190621
